FAERS Safety Report 25617143 (Version 1)
Quarter: 2025Q3

REPORT INFORMATION
  Report Type: Spontaneous
  Country: EU (occurrence: EU)
  Receive Date: 20250729
  Receipt Date: 20250729
  Transmission Date: 20251020
  Serious: Yes (Other)
  Sender: AMNEAL
  Company Number: EU-AMNEAL PHARMACEUTICALS-2025-AMRX-02823

PATIENT
  Sex: Male
  Weight: 1.296 kg

DRUGS (4)
  1. DEXMEDETOMIDINE HYDROCHLORIDE [Suspect]
     Active Substance: DEXMEDETOMIDINE HYDROCHLORIDE
     Indication: Product used for unknown indication
     Route: 048
  2. CAFFEINE [Concomitant]
     Active Substance: CAFFEINE
     Indication: Product used for unknown indication
  3. IRON [Concomitant]
     Active Substance: IRON
     Indication: Product used for unknown indication
     Route: 065
  4. CHOLECALCIFEROL [Concomitant]
     Active Substance: CHOLECALCIFEROL
     Indication: Product used for unknown indication
     Route: 065

REACTIONS (10)
  - Hypotonia neonatal [Recovered/Resolved]
  - Irregular breathing [Recovered/Resolved]
  - Neonatal hyperglycaemia [Recovered/Resolved]
  - Accidental overdose [Unknown]
  - Product label confusion [Unknown]
  - Apnoea [Recovered/Resolved]
  - Bradycardia neonatal [Recovered/Resolved]
  - Hypocapnia [Recovered/Resolved]
  - Irritability [Recovered/Resolved]
  - Slow response to stimuli [Recovered/Resolved]
